FAERS Safety Report 4325162-6 (Version None)
Quarter: 2004Q1

REPORT INFORMATION
  Report Type: 
  Country: None (occurrence: None)
  Receive Date: 20040324
  Receipt Date: 20040319
  Transmission Date: 20041129
  Serious: Yes (Death)
  Sender: FDA-Public Use
  Company Number: ENT 2004-0045(1)

PATIENT
  Age: 84 Year
  Sex: Female

DRUGS (4)
  1. COMTAN [Suspect]
     Dosage: 200 MG
     Route: 048
     Dates: start: 20030701, end: 20040102
  2. AMANTADINE SULFATE [Concomitant]
  3. ENALAPRIL MALEATE [Concomitant]
  4. CARBIDOPA AND LEVODOPA [Concomitant]

REACTIONS (9)
  - ALBUMINURIA [None]
  - ANAEMIA [None]
  - CACHEXIA [None]
  - ELECTROLYTE IMBALANCE [None]
  - GASTROINTESTINAL MOTILITY DISORDER [None]
  - INTESTINAL OBSTRUCTION [None]
  - MALNUTRITION [None]
  - PARKINSON'S DISEASE [None]
  - SEPSIS [None]
